FAERS Safety Report 14493697 (Version 2)
Quarter: 2018Q2

REPORT INFORMATION
  Report Type: Report from Study
  Country: US (occurrence: US)
  Receive Date: 20180206
  Receipt Date: 20180515
  Transmission Date: 20180711
  Serious: Yes (Hospitalization)
  Sender: FDA-Public Use
  Company Number: US-CELGENEUS-USA-20180200302

PATIENT
  Age: 40 Year
  Sex: Male
  Weight: 93 kg

DRUGS (71)
  1. FLUCONAZOLE. [Concomitant]
     Active Substance: FLUCONAZOLE
     Route: 048
     Dates: start: 20171224, end: 20171225
  2. ENOXAPARIN [Concomitant]
     Active Substance: ENOXAPARIN
     Indication: THROMBOSIS
     Route: 058
     Dates: start: 20171219
  3. ACYCLOVIR. [Concomitant]
     Active Substance: ACYCLOVIR
     Route: 048
     Dates: start: 20171225, end: 20180103
  4. SODIUM CHLORIDE. [Concomitant]
     Active Substance: SODIUM CHLORIDE
     Indication: DEHYDRATION
     Route: 041
     Dates: start: 20171212, end: 20180103
  5. SIMETHICONE (DIMETHICONE) [Concomitant]
     Active Substance: DIMETHICONE
     Indication: ABDOMINAL PAIN
     Route: 048
     Dates: start: 20171226, end: 20171227
  6. POSACONAZOLE [Concomitant]
     Active Substance: POSACONAZOLE
     Indication: NAIL INFECTION
     Route: 048
     Dates: start: 20171226, end: 20180102
  7. MIDAZOLAM [Concomitant]
     Active Substance: MIDAZOLAM HYDROCHLORIDE
     Indication: SEDATIVE THERAPY
     Route: 041
     Dates: start: 20171229, end: 20171229
  8. LIDOCAINE-EPINEPHRINE [Concomitant]
     Active Substance: EPINEPHRINE\LIDOCAINE
     Dosage: 2 PERCENT
     Route: 058
     Dates: start: 20180103, end: 20180103
  9. FUROSEMIDE. [Concomitant]
     Active Substance: FUROSEMIDE
     Indication: OEDEMA
     Route: 041
     Dates: start: 20171230, end: 20171231
  10. DAUNORUBICIN [Suspect]
     Active Substance: DAUNORUBICIN
     Indication: ACUTE MYELOID LEUKAEMIA
     Dosage: 120 MILLIGRAM
     Route: 041
     Dates: start: 20170817, end: 20170904
  11. CHLORHEXIDINE [Concomitant]
     Active Substance: CHLORHEXIDINE
     Route: 048
     Dates: start: 20171224, end: 20180103
  12. ACYCLOVIR. [Concomitant]
     Active Substance: ACYCLOVIR
     Indication: VIRAL INFECTION
     Route: 048
     Dates: start: 20171010
  13. VANCOMYCIN [Concomitant]
     Active Substance: VANCOMYCIN
     Indication: SCROTAL INFECTION
     Route: 041
     Dates: start: 20171224, end: 20171230
  14. VANCOMYCIN [Concomitant]
     Active Substance: VANCOMYCIN
     Indication: SEPSIS
     Route: 041
     Dates: start: 20180108, end: 20180112
  15. SODIUM CHLORIDE. [Concomitant]
     Active Substance: SODIUM CHLORIDE
     Route: 041
     Dates: start: 20171228, end: 20171229
  16. POTASSIUM CHLORIDE. [Concomitant]
     Active Substance: POTASSIUM CHLORIDE
     Indication: HYPOKALAEMIA
     Route: 041
     Dates: start: 20171225, end: 20171225
  17. POTASSIUM CHLORIDE. [Concomitant]
     Active Substance: POTASSIUM CHLORIDE
     Route: 041
     Dates: start: 20171227, end: 20171231
  18. ONDANSETRON [Concomitant]
     Active Substance: ONDANSETRON
     Indication: VOMITING
     Route: 041
     Dates: start: 20180102
  19. DIPHENHYDRAMINE. [Concomitant]
     Active Substance: DIPHENHYDRAMINE
     Route: 041
     Dates: start: 20171231, end: 20180103
  20. AG-221 [Suspect]
     Active Substance: ENASIDENIB
     Indication: ACUTE MYELOID LEUKAEMIA
     Dosage: 100 MILLIGRAM
     Route: 048
     Dates: start: 20170817, end: 20171009
  21. FLUCONAZOLE. [Concomitant]
     Active Substance: FLUCONAZOLE
     Indication: FUNGAL INFECTION
     Route: 048
     Dates: start: 20170927
  22. ZOSYN [Concomitant]
     Active Substance: PIPERACILLIN SODIUM\TAZOBACTAM SODIUM
     Indication: SCROTAL INFECTION
     Route: 041
     Dates: start: 20180108, end: 20180112
  23. TETRACAINE-BENZOCAINE [Concomitant]
     Indication: LOCAL ANAESTHESIA
     Route: 061
     Dates: start: 20171229, end: 20171229
  24. MELATONIN [Concomitant]
     Active Substance: MELATONIN
     Indication: INSOMNIA
     Route: 048
     Dates: start: 20171229, end: 20180102
  25. DIPHENHYDRAMINE. [Concomitant]
     Active Substance: DIPHENHYDRAMINE
     Indication: HYPERSENSITIVITY
     Route: 041
     Dates: start: 20171224, end: 20171224
  26. DIPHENHYDRAMINE. [Concomitant]
     Active Substance: DIPHENHYDRAMINE
     Route: 041
     Dates: start: 20171228, end: 20171229
  27. CIPROFLOXACIN. [Concomitant]
     Active Substance: CIPROFLOXACIN
     Indication: SEPSIS
     Route: 048
     Dates: start: 20180101, end: 20180102
  28. CEFTRIAXONE. [Concomitant]
     Active Substance: CEFTRIAXONE
     Indication: SEPSIS
     Route: 041
     Dates: start: 20180101, end: 20180102
  29. AMPICILLIN [Concomitant]
     Active Substance: AMPICILLIN
     Indication: SEPSIS
     Route: 041
     Dates: start: 20171224, end: 20171225
  30. FILGRASTIM [Concomitant]
     Active Substance: FILGRASTIM
     Indication: LEUKOPENIA
     Route: 058
     Dates: start: 20171216
  31. CHLORHEXIDINE [Concomitant]
     Active Substance: CHLORHEXIDINE
     Indication: BACTERIAL INFECTION
     Route: 048
     Dates: start: 20170926
  32. PANTOPRAZOLE [Concomitant]
     Active Substance: PANTOPRAZOLE
     Indication: GASTROOESOPHAGEAL REFLUX DISEASE
     Route: 048
     Dates: start: 20171226, end: 20180103
  33. BACTRIM [Concomitant]
     Active Substance: SULFAMETHOXAZOLE\TRIMETHOPRIM
     Indication: SCROTAL INFECTION
     Route: 048
     Dates: start: 20180113, end: 20180120
  34. MICONAZOLE. [Concomitant]
     Active Substance: MICONAZOLE
     Indication: NAIL INFECTION
     Dosage: 2 PERCENT
     Route: 061
     Dates: start: 20171228
  35. LACTATED RINGERS SOLUTION [Concomitant]
     Active Substance: CALCIUM CHLORIDE\POTASSIUM CHLORIDE\SODIUM CHLORIDE\SODIUM LACTATE
     Indication: DEHYDRATION
     Route: 041
     Dates: start: 20171224, end: 20171224
  36. DIPHENHYDRAMINE. [Concomitant]
     Active Substance: DIPHENHYDRAMINE
     Route: 041
     Dates: start: 20171226, end: 20171226
  37. AMBISOME [Concomitant]
     Active Substance: AMPHOTERICIN B
     Indication: SEPSIS
     Route: 041
     Dates: start: 20171224, end: 20171224
  38. ENSURE COMPLETE [Concomitant]
     Indication: NUTRITIONAL SUPPLEMENTATION
     Route: 048
     Dates: start: 20171204
  39. FLUTICASONE. [Concomitant]
     Active Substance: FLUTICASONE
     Indication: MULTIPLE ALLERGIES
     Route: 045
     Dates: start: 20170912
  40. ACYCLOVIR. [Concomitant]
     Active Substance: ACYCLOVIR
     Route: 048
     Dates: start: 20171224, end: 20171225
  41. MIDAZOLAM [Concomitant]
     Active Substance: MIDAZOLAM HYDROCHLORIDE
     Route: 041
     Dates: start: 20180103, end: 20180103
  42. METRONIDAZOLE. [Concomitant]
     Active Substance: METRONIDAZOLE
     Route: 048
     Dates: start: 20171224, end: 20171226
  43. MELATONIN [Concomitant]
     Active Substance: MELATONIN
     Route: 048
     Dates: start: 20171226, end: 20171227
  44. LEVOFLOXACIN. [Concomitant]
     Active Substance: LEVOFLOXACIN
     Indication: BACTERIAL INFECTION
     Route: 048
     Dates: start: 20180102, end: 20180215
  45. INFLUENZA VACCINE [Concomitant]
     Active Substance: INFLUENZA VIRUS VACCINE
     Indication: INFLUENZA
     Route: 030
     Dates: start: 20170327, end: 20171227
  46. FENTANYL. [Concomitant]
     Active Substance: FENTANYL
     Indication: PAIN
     Route: 041
     Dates: start: 20180103, end: 20180103
  47. FENTANYL. [Concomitant]
     Active Substance: FENTANYL
     Route: 041
     Dates: start: 20171229, end: 20171229
  48. CYTARABINE. [Suspect]
     Active Substance: CYTARABINE
     Indication: ACUTE MYELOID LEUKAEMIA
     Dosage: 6120 MILLIGRAM
     Route: 041
     Dates: start: 20170817, end: 20171215
  49. DOCUSATE [Concomitant]
     Active Substance: DOCUSATE
     Route: 048
     Dates: start: 20180101, end: 20180102
  50. TOBRAMYCIN. [Concomitant]
     Active Substance: TOBRAMYCIN
     Indication: SEPSIS
     Route: 041
     Dates: start: 20171224, end: 20171224
  51. METRONIDAZOLE. [Concomitant]
     Active Substance: METRONIDAZOLE
     Indication: DIARRHOEA
     Route: 048
     Dates: start: 20171227, end: 20180113
  52. LIDOCAINE. [Concomitant]
     Active Substance: LIDOCAINE
     Indication: LOCAL ANAESTHESIA
     Dosage: 1 PERCENT
     Route: 065
     Dates: start: 20171229, end: 20171229
  53. LEVOFLOXACIN. [Concomitant]
     Active Substance: LEVOFLOXACIN
     Route: 048
     Dates: start: 20171010
  54. CALCIUM GLUCONATE. [Concomitant]
     Active Substance: CALCIUM GLUCONATE
     Indication: BLOOD CALCIUM DECREASED
     Route: 041
     Dates: start: 20171225, end: 20171225
  55. AG-221 [Suspect]
     Active Substance: ENASIDENIB
     Dosage: 100 MILLIGRAM
     Route: 048
     Dates: end: 20180121
  56. DOCUSATE [Concomitant]
     Active Substance: DOCUSATE
     Indication: CONSTIPATION
     Route: 048
     Dates: start: 20170811
  57. CETIRIZINE [Concomitant]
     Active Substance: CETIRIZINE HYDROCHLORIDE
     Indication: MULTIPLE ALLERGIES
     Route: 048
     Dates: start: 20170927
  58. POLYETHYLENE GLYCOL [Concomitant]
     Active Substance: POLYETHYLENE GLYCOLS
     Indication: CONSTIPATION
     Route: 048
     Dates: start: 20171231, end: 20171231
  59. SODIUM CHLORIDE. [Concomitant]
     Active Substance: SODIUM CHLORIDE
     Route: 041
     Dates: start: 20171224, end: 20171226
  60. MAGNESIUM SULFATE. [Concomitant]
     Active Substance: MAGNESIUM SULFATE
     Indication: BLOOD MAGNESIUM DECREASED
     Route: 041
     Dates: start: 20171224, end: 20171224
  61. GUAIFENESIN. [Concomitant]
     Active Substance: GUAIFENESIN
     Indication: COUGH
     Route: 048
     Dates: start: 20171227
  62. CEFEPIME [Concomitant]
     Active Substance: CEFEPIME HYDROCHLORIDE
     Indication: SEPSIS
     Route: 065
     Dates: start: 20171224, end: 20180101
  63. OXYCODONE [Concomitant]
     Active Substance: OXYCODONE
     Indication: SCROTAL PAIN
     Route: 048
     Dates: start: 20171219, end: 20171227
  64. ONDANSETRON [Concomitant]
     Active Substance: ONDANSETRON
     Indication: NAUSEA
     Route: 041
     Dates: start: 20171225, end: 20180103
  65. NOREPINEPHRINE IN SODIUM CHLORIDE [Concomitant]
     Indication: HYPOTENSION
     Dosage: .9 PERCENT
     Route: 041
     Dates: start: 20171224, end: 20171224
  66. MAGNESIUM SULFATE. [Concomitant]
     Active Substance: MAGNESIUM SULFATE
     Route: 041
     Dates: start: 20180101, end: 20180101
  67. LIDOCAINE-EPINEPHRINE [Concomitant]
     Active Substance: EPINEPHRINE\LIDOCAINE
     Indication: LOCAL ANAESTHESIA
     Dosage: 2 PERCENT
     Route: 058
     Dates: start: 20171229, end: 20171229
  68. IOHEXOL [Concomitant]
     Active Substance: IOHEXOL
     Indication: PRODUCT USED FOR UNKNOWN INDICATION
     Route: 041
     Dates: start: 20171224, end: 20171224
  69. HYDROCORTISONE. [Concomitant]
     Active Substance: HYDROCORTISONE
     Indication: INFUSION RELATED REACTION
     Route: 041
     Dates: start: 20180101, end: 20180101
  70. FAMOTIDINE. [Concomitant]
     Active Substance: FAMOTIDINE
     Indication: INFUSION RELATED REACTION
     Route: 041
     Dates: start: 20180101, end: 20180102
  71. ACETAMINOPHEN. [Concomitant]
     Active Substance: ACETAMINOPHEN
     Indication: PYREXIA
     Route: 048
     Dates: start: 20171224, end: 20180103

REACTIONS (1)
  - Lymphadenopathy [Not Recovered/Not Resolved]

NARRATIVE: CASE EVENT DATE: 20180122
